FAERS Safety Report 10008084 (Version 10)
Quarter: 2019Q2

REPORT INFORMATION
  Report Type: Spontaneous
  Country: US (occurrence: US)
  Receive Date: 20140313
  Receipt Date: 20190606
  Transmission Date: 20190711
  Serious: Yes (Other)
  Sender: FDA-Public Use
  Company Number: US-JNJFOC-20140305009

PATIENT

DRUGS (2)
  1. INFLIXIMAB, RECOMBINANT [Suspect]
     Active Substance: INFLIXIMAB
     Indication: RHEUMATOID ARTHRITIS
     Route: 042
  2. METHOTREXATE. [Concomitant]
     Active Substance: METHOTREXATE
     Route: 065

REACTIONS (8)
  - Autoimmune disorder [Unknown]
  - Double stranded DNA antibody positive [Unknown]
  - Autoantibody positive [Unknown]
  - Antinuclear antibody positive [Unknown]
  - Adverse event [Unknown]
  - Infection [Unknown]
  - Neoplasm malignant [Unknown]
  - Opportunistic infection [Unknown]
